FAERS Safety Report 9291955 (Version 5)
Quarter: 2014Q1

REPORT INFORMATION
  Report Type: Spontaneous
  Country: AR (occurrence: AR)
  Receive Date: 20130516
  Receipt Date: 20140304
  Transmission Date: 20141002
  Serious: Yes (Other)
  Sender: FDA-Public Use
  Company Number: AR-AMGEN-ARGSP2013034237

PATIENT
  Age: 43 Year
  Sex: Female

DRUGS (3)
  1. ENBREL [Suspect]
     Indication: RHEUMATOID ARTHRITIS
     Dosage: 50 MG, WEEKLY
     Route: 058
     Dates: start: 20110718, end: 201208
  2. ARTRAIT                            /00113801/ [Concomitant]
     Dosage: 7.5 MG, WEEKLY
     Dates: start: 2007, end: 201402
  3. PANTOPRAZOL [Concomitant]
     Dosage: 40 MG, 1X/DAY
     Route: 048

REACTIONS (10)
  - Rheumatoid arthritis [Recovering/Resolving]
  - Nausea [Not Recovered/Not Resolved]
  - Vomiting [Not Recovered/Not Resolved]
  - Liver disorder [Not Recovered/Not Resolved]
  - Local swelling [Not Recovered/Not Resolved]
  - Tuberculin test positive [Not Recovered/Not Resolved]
  - Gastric disorder [Not Recovered/Not Resolved]
  - Decreased immune responsiveness [Recovering/Resolving]
  - Lung disorder [Unknown]
  - Bronchitis [Recovered/Resolved]
